FAERS Safety Report 9787820 (Version 1)
Quarter: 2013Q4

REPORT INFORMATION
  Report Type: Spontaneous
  Country: US (occurrence: US)
  Receive Date: 20131230
  Receipt Date: 20131230
  Transmission Date: 20140711
  Serious: Yes (Other)
  Sender: FDA-Public Use
  Company Number: US-PFIZER INC-2013371187

PATIENT
  Sex: Female

DRUGS (1)
  1. CHANTIX [Suspect]
     Indication: SMOKING CESSATION THERAPY
     Dosage: UNK

REACTIONS (6)
  - Depression [Unknown]
  - Mood swings [Unknown]
  - Rash generalised [Unknown]
  - Scar [Unknown]
  - Abdominal pain upper [Unknown]
  - Pain [Unknown]
